FAERS Safety Report 15179471 (Version 1)
Quarter: 2018Q3

REPORT INFORMATION
  Report Type: Report from Study
  Country: US (occurrence: US)
  Receive Date: 20180723
  Receipt Date: 20180723
  Transmission Date: 20181010
  Serious: No
  Sender: FDA-Public Use
  Company Number: PHEH2018US029763

PATIENT
  Sex: Female

DRUGS (1)
  1. GILENYA [Suspect]
     Active Substance: FINGOLIMOD HYDROCHLORIDE
     Indication: MULTIPLE SCLEROSIS
     Dosage: 0.5 MG, QD
     Route: 048
     Dates: start: 20180414

REACTIONS (6)
  - Nausea [Recovered/Resolved]
  - Head discomfort [Recovered/Resolved]
  - Back pain [Unknown]
  - Burning sensation [Unknown]
  - Neck pain [Unknown]
  - Pain in extremity [Unknown]
